FAERS Safety Report 15473255 (Version 3)
Quarter: 2018Q4

REPORT INFORMATION
  Report Type: Spontaneous
  Country: JP (occurrence: JP)
  Receive Date: 20181008
  Receipt Date: 20181126
  Transmission Date: 20190205
  Serious: Yes (Hospitalization, Other)
  Sender: FDA-Public Use
  Company Number: JP-ELI_LILLY_AND_COMPANY-JP201810002838

PATIENT
  Age: 64 Year
  Sex: Male

DRUGS (4)
  1. ERBITUX [Suspect]
     Active Substance: CETUXIMAB
     Dosage: 370 MG, UNKNOWN
     Route: 041
     Dates: start: 201808, end: 20180918
  2. TAS 102 [Suspect]
     Active Substance: TIPIRACIL HYDROCHLORIDE\TRIFLURIDINE
     Dosage: 90 MG, UNKNOWN
     Route: 048
     Dates: end: 20180915
  3. TAS 102 [Suspect]
     Active Substance: TIPIRACIL HYDROCHLORIDE\TRIFLURIDINE
     Indication: COLON CANCER
     Dosage: 100 MG, UNKNOWN
     Route: 048
     Dates: start: 20180806
  4. ERBITUX [Suspect]
     Active Substance: CETUXIMAB
     Indication: COLON CANCER
     Dosage: 592 MG, UNKNOWN
     Route: 041
     Dates: start: 20180806, end: 20180806

REACTIONS (5)
  - Device occlusion [Unknown]
  - Stomatitis [Recovered/Resolved]
  - Biliary tract infection [Recovered/Resolved]
  - Cholangitis [Recovered/Resolved]
  - Off label use [Unknown]

NARRATIVE: CASE EVENT DATE: 20180917
